FAERS Safety Report 5924410-6 (Version None)
Quarter: 2008Q4

REPORT INFORMATION
  Report Type: 
  Country: None (occurrence: None)
  Receive Date: 20081020
  Receipt Date: 20081013
  Transmission Date: 20090506
  Serious: No
  Sender: FDA-Public Use
  Company Number: US-B.I. PHARMACEUTICALS,INC./RIDGEFIELD-2008-BP-14425BP

PATIENT
  Sex: Female

DRUGS (4)
  1. SPIRIVA [Suspect]
     Indication: EMPHYSEMA
     Dosage: 18MCG
     Route: 048
     Dates: start: 20080401
  2. SPIRIVA [Suspect]
     Indication: BRONCHIAL DISORDER
  3. NEXIUM [Concomitant]
     Indication: ABDOMINAL DISCOMFORT
  4. FLUOXETINE HCL [Concomitant]
     Indication: HORMONE LEVEL ABNORMAL

REACTIONS (3)
  - ABDOMINAL DISCOMFORT [None]
  - FATIGUE [None]
  - INCORRECT ROUTE OF DRUG ADMINISTRATION [None]
